FAERS Safety Report 11254882 (Version 1)
Quarter: 2015Q3

REPORT INFORMATION
  Report Type: Spontaneous
  Country: US (occurrence: US)
  Receive Date: 20150709
  Receipt Date: 20150709
  Transmission Date: 20151125
  Serious: No
  Sender: FDA-Public Use
  Company Number: US-PFIZER INC-2015224614

PATIENT
  Age: 79 Year
  Sex: Female

DRUGS (4)
  1. METRONIDAZOLE. [Suspect]
     Active Substance: METRONIDAZOLE
     Indication: POST PROCEDURAL INFECTION
     Dosage: UNK UNK, 2X/DAY
     Route: 048
     Dates: end: 20150107
  2. METRONIDAZOLE. [Suspect]
     Active Substance: METRONIDAZOLE
     Indication: HELICOBACTER GASTRITIS
     Dosage: 250 MG, 4X/DAY
     Route: 048
     Dates: start: 20141017, end: 20141022
  3. TETRACYCLINE [Concomitant]
     Active Substance: TETRACYCLINE
     Indication: POST PROCEDURAL INFECTION
     Dosage: UNK
     Dates: end: 20150107
  4. METRONIDAZOLE. [Suspect]
     Active Substance: METRONIDAZOLE
     Indication: LYMPHADENITIS

REACTIONS (1)
  - Abdominal pain [Unknown]

NARRATIVE: CASE EVENT DATE: 20141101
